FAERS Safety Report 7972565-4 (Version None)
Quarter: 2011Q4

REPORT INFORMATION
  Report Type: 
  Country: None (occurrence: None)
  Receive Date: 20111213
  Receipt Date: 20111202
  Transmission Date: 20120403
  Serious: Yes (Hospitalization)
  Sender: FDA-Public Use
  Company Number: US-BAYER-2011-027472

PATIENT
  Age: 26 Year
  Sex: Female
  Weight: 104 kg

DRUGS (8)
  1. METROOXIDAL GEL [Concomitant]
  2. AMOXICILLIN [Concomitant]
     Dosage: 250 MG, UNK
  3. GRISEOFULVIN [Concomitant]
     Dosage: UNK
     Dates: start: 20061101, end: 20071101
  4. YASMIN [Suspect]
     Dosage: UNK
     Dates: start: 20051101, end: 20060301
  5. REGLAN [Concomitant]
     Dosage: 10 MG, DAILY
  6. CENTRUM [Concomitant]
     Dosage: DAILY
  7. GRIFULVIN [Concomitant]
     Dosage: DAILY
  8. LOVAZA [Concomitant]
     Dosage: DAILY

REACTIONS (12)
  - CONTUSION [None]
  - EMOTIONAL DISTRESS [None]
  - ANXIETY [None]
  - ANHEDONIA [None]
  - OEDEMA PERIPHERAL [None]
  - INJURY [None]
  - CHOLECYSTECTOMY [None]
  - MALAISE [None]
  - PAIN [None]
  - CHOLECYSTITIS CHRONIC [None]
  - VENOUS INSUFFICIENCY [None]
  - GENERAL PHYSICAL HEALTH DETERIORATION [None]
